FAERS Safety Report 19067909 (Version 1)
Quarter: 2021Q1

REPORT INFORMATION
  Report Type: Spontaneous
  Country: CN (occurrence: CN)
  Receive Date: 20210329
  Receipt Date: 20210329
  Transmission Date: 20210420
  Serious: Yes (Other)
  Sender: FDA-Public Use
  Company Number: CN-PFIZER INC-2021295989

PATIENT
  Age: 67 Year
  Sex: Male

DRUGS (1)
  1. SOLU?MEDROL [Suspect]
     Active Substance: METHYLPREDNISOLONE SODIUM SUCCINATE
     Indication: INFECTION
     Dosage: 120 MG, 1X/DAY
     Route: 041
     Dates: start: 20201213, end: 20210102

REACTIONS (1)
  - Full blood count increased [Recovering/Resolving]

NARRATIVE: CASE EVENT DATE: 20210101
